FAERS Safety Report 25615947 (Version 3)
Quarter: 2025Q3

REPORT INFORMATION
  Report Type: Spontaneous
  Country: US (occurrence: US)
  Receive Date: 20250729
  Receipt Date: 20250812
  Transmission Date: 20251021
  Serious: Yes (Death, Life-Threatening, Hospitalization, Other)
  Sender: AUROBINDO
  Company Number: US-MLMSERVICE-20250710-PI573991-00271-1

PATIENT
  Age: 59 Year
  Sex: Female

DRUGS (1)
  1. PREDNISONE [Suspect]
     Active Substance: PREDNISONE
     Indication: Granulomatosis with polyangiitis
     Route: 065

REACTIONS (6)
  - Necrotising fasciitis [Fatal]
  - Septic shock [Fatal]
  - Pneumonia streptococcal [Fatal]
  - Acute kidney injury [Fatal]
  - Colitis ischaemic [Fatal]
  - Multiple organ dysfunction syndrome [Fatal]
